FAERS Safety Report 5945790-1 (Version None)
Quarter: 2008Q4

REPORT INFORMATION
  Report Type: 
  Country: None (occurrence: None)
  Receive Date: 20081106
  Receipt Date: 20080821
  Transmission Date: 20090506
  Serious: No
  Sender: FDA-Public Use
  Company Number: NXG-08-006

PATIENT
  Sex: Male

DRUGS (1)
  1. POLYETHYLENE GLYCOL 3350 [Suspect]
     Indication: CONSTIPATION
     Dosage: 17GM IN 80Z WATER/DAY

REACTIONS (3)
  - DYSGEUSIA [None]
  - NAUSEA [None]
  - PRODUCT QUALITY ISSUE [None]
